FAERS Safety Report 10269551 (Version 3)
Quarter: 2014Q3

REPORT INFORMATION
  Report Type: Report from Study
  Country: US (occurrence: US)
  Receive Date: 20140701
  Receipt Date: 20140904
  Transmission Date: 20150326
  Serious: Yes (Hospitalization)
  Sender: FDA-Public Use
  Company Number: US-BRISTOL-MYERS SQUIBB COMPANY-20745642

PATIENT
  Age: 73 Year
  Sex: Male
  Weight: 92.7 kg

DRUGS (3)
  1. PREDNISONE. [Concomitant]
     Active Substance: PREDNISONE
  2. LOVENOX [Concomitant]
     Active Substance: ENOXAPARIN SODIUM
  3. IPILIMUMAB [Suspect]
     Active Substance: IPILIMUMAB
     Indication: MALIGNANT MELANOMA
     Dosage: CYE:21DAYS?MAINT:DY 1 OF 4TH CYCL BEGING ON CYCL8?TOT. DE:278MG?LST DE:08APR14?14JN14-?278 MG
     Route: 042
     Dates: start: 20140128, end: 20140408

REACTIONS (3)
  - Septic shock [Recovered/Resolved]
  - Colitis [Recovered/Resolved]
  - Diarrhoea [Recovered/Resolved]

NARRATIVE: CASE EVENT DATE: 20140509
